FAERS Safety Report 5882190-7 (Version None)
Quarter: 2008Q3

REPORT INFORMATION
  Report Type: 
  Country: None (occurrence: None)
  Receive Date: 20080912
  Receipt Date: 20080724
  Transmission Date: 20090109
  Serious: No
  Sender: FDA-Public Use
  Company Number: US-ABBOTT-08P-163-0466297-00

PATIENT
  Sex: Male
  Weight: 80.812 kg

DRUGS (2)
  1. HUMIRA [Suspect]
     Indication: RHEUMATOID ARTHRITIS
     Route: 058
     Dates: start: 20071101
  2. HUMIRA [Suspect]
     Dosage: PFS
     Dates: start: 20040101, end: 20071101

REACTIONS (3)
  - ARTHRITIS [None]
  - INCREASED TENDENCY TO BRUISE [None]
  - SKIN LACERATION [None]
